FAERS Safety Report 15418190 (Version 1)
Quarter: 2018Q3

REPORT INFORMATION
  Report Type: Spontaneous
  Country: PT (occurrence: FR)
  Receive Date: 20180924
  Receipt Date: 20180924
  Transmission Date: 20181010
  Serious: Yes (Hospitalization, Other)
  Sender: FDA-Public Use
  Company Number: PT-SUNOVION-2018SUN003599

PATIENT

DRUGS (4)
  1. ZEBINIX [Suspect]
     Active Substance: ESLICARBAZEPINE ACETATE
     Indication: DEPRESSION
     Dosage: 400 MG, 1X / DAY
     Route: 048
     Dates: start: 20180516, end: 20180517
  2. NEURONTIN [Concomitant]
     Active Substance: GABAPENTIN
     Dosage: 400 MG, 1X / DAY
     Route: 048
  3. NEURONTIN [Concomitant]
     Active Substance: GABAPENTIN
     Dosage: 2400 MG (3 DF ONCE DAILY)
     Route: 048
  4. KEPPRA [Concomitant]
     Active Substance: LEVETIRACETAM
     Dosage: 2000 MG (4 DF ONCE DAILY)
     Route: 048

REACTIONS (5)
  - Status epilepticus [Recovered/Resolved]
  - Epilepsy [Recovered/Resolved]
  - Off label use [Unknown]
  - Hyponatraemia [Recovered/Resolved]
  - Hyponatraemic seizure [Recovered/Resolved]

NARRATIVE: CASE EVENT DATE: 20180516
